FAERS Safety Report 4810470-2 (Version None)
Quarter: 2005Q4

REPORT INFORMATION
  Report Type: 
  Country: None (occurrence: None)
  Receive Date: 20051025
  Receipt Date: 20051025
  Transmission Date: 20060501
  Serious: Yes (Hospitalization)
  Sender: FDA-Public Use
  Company Number: None

PATIENT
  Age: 57 Year
  Sex: Male

DRUGS (12)
  1. MORPHINE [Suspect]
     Dates: start: 20050824, end: 20050824
  2. ACETAMINOPHEN [Concomitant]
  3. BISACODYL [Concomitant]
  4. CITALOPRAM [Concomitant]
  5. DOCUSATE SODIUM [Concomitant]
  6. FERROUS SULFATE TAB [Concomitant]
  7. FLUNISOLIDE [Concomitant]
  8. HUMULIN R [Concomitant]
  9. METFORMIN HCL [Concomitant]
  10. MORPHINE [Concomitant]
  11. OXYCODONE + ACETAMINOPHEN TAB [Concomitant]
  12. SODIUM CHLORIDE [Concomitant]

REACTIONS (2)
  - CARDIO-RESPIRATORY ARREST [None]
  - LOSS OF CONSCIOUSNESS [None]
